FAERS Safety Report 7114044-2 (Version None)
Quarter: 2010Q4

REPORT INFORMATION
  Report Type: 
  Country: None (occurrence: None)
  Receive Date: 20101119
  Receipt Date: 20101112
  Transmission Date: 20110411
  Serious: Yes (Death)
  Sender: FDA-Public Use
  Company Number: RO-WATSON-2010-10698

PATIENT
  Sex: Male

DRUGS (1)
  1. TRELSTAR [Suspect]
     Indication: PROSTATE CANCER
     Dosage: 22.5 MG, SINGLE CYCLE
     Route: 030
     Dates: start: 20100510, end: 20100510

REACTIONS (1)
  - SUDDEN DEATH [None]
